FAERS Safety Report 4486920-0 (Version None)
Quarter: 2004Q4

REPORT INFORMATION
  Report Type: 
  Country: None (occurrence: None)
  Receive Date: 20041022
  Receipt Date: 20041007
  Transmission Date: 20050328
  Serious: Yes (Hospitalization)
  Sender: FDA-Public Use
  Company Number: 2004237479TR

PATIENT
  Age: 68 Year
  Sex: Female

DRUGS (1)
  1. SULFASALAZINE [Suspect]
     Indication: RHEUMATOID ARTHRITIS
     Dosage: 2 X 1G,

REACTIONS (4)
  - BLOOD PH INCREASED [None]
  - CRYPTOGENIC ORGANIZING PNEUMONIA [None]
  - HYPOXIA [None]
  - PIGMENTATION DISORDER [None]
